FAERS Safety Report 13229207 (Version 4)
Quarter: 2017Q1

REPORT INFORMATION
  Report Type: Spontaneous
  Country: FR (occurrence: FR)
  Receive Date: 20170214
  Receipt Date: 20170322
  Transmission Date: 20170428
  Serious: Yes (Hospitalization, Other)
  Sender: FDA-Public Use
  Company Number: FR-009507513-1702FRA005733

PATIENT
  Age: 81 Year
  Sex: Male
  Weight: 92 kg

DRUGS (7)
  1. JANUVIA [Suspect]
     Active Substance: SITAGLIPTIN PHOSPHATE
     Dosage: 100 MG, QAM
     Route: 048
     Dates: start: 20170204, end: 20170208
  2. CRESTOR [Concomitant]
     Active Substance: ROSUVASTATIN CALCIUM
  3. PERINDOPRIL [Concomitant]
     Active Substance: PERINDOPRIL
  4. BILASKA [Concomitant]
     Active Substance: BILASTINE
  5. PREVISCAN [Concomitant]
     Active Substance: FLUINDIONE
  6. LASILIX [Concomitant]
     Active Substance: FUROSEMIDE
  7. ASPIRIN. [Concomitant]
     Active Substance: ASPIRIN
     Route: 048

REACTIONS (2)
  - Cardiac failure [Recovered/Resolved]
  - Dyspnoea [Recovered/Resolved]

NARRATIVE: CASE EVENT DATE: 20170206
